FAERS Safety Report 4510048-4 (Version None)
Quarter: 2004Q4

REPORT INFORMATION
  Report Type: 
  Country: None (occurrence: None)
  Receive Date: 20041119
  Receipt Date: 20041109
  Transmission Date: 20050328
  Serious: Yes (Hospitalization)
  Sender: FDA-Public Use
  Company Number: 200413089GDS

PATIENT
  Sex: Male
  Weight: 112 kg

DRUGS (1)
  1. NIFEDIPINE [Suspect]
     Indication: HYPERTENSION
     Dosage: 10 MG, BID, ORAL
     Route: 048

REACTIONS (3)
  - CARDIOMEGALY [None]
  - HYPERTENSION [None]
  - SINUS TACHYCARDIA [None]
